FAERS Safety Report 9006639 (Version 2)
Quarter: 2013Q1

REPORT INFORMATION
  Report Type: Spontaneous
  Country: US (occurrence: US)
  Receive Date: 20130110
  Receipt Date: 20130307
  Transmission Date: 20140127
  Serious: Yes (Death, Other)
  Sender: FDA-Public Use
  Company Number: US-ELI_LILLY_AND_COMPANY-US201301000317

PATIENT
  Age: 77 Year
  Sex: Female
  Weight: 52.61 kg

DRUGS (14)
  1. ZYPREXA [Suspect]
     Indication: MAJOR DEPRESSION
     Dosage: 5 MG, EACH EVENING
     Route: 048
     Dates: start: 20090119
  2. ZYPREXA [Suspect]
     Dosage: 2.5 MG, EACH EVENING
     Route: 048
  3. SERTRALINE [Concomitant]
     Dosage: 100 MG, EACH EVENING
  4. NAMENDA [Concomitant]
     Dosage: 10 MG, BID
  5. ARICEPT [Concomitant]
     Dosage: 10 MG, EACH EVENING
  6. ATENOLOL [Concomitant]
     Dosage: 12.5 MG, QD
  7. ALTACE [Concomitant]
     Dosage: 5 MG, QD
  8. ASACOL [Concomitant]
     Dosage: 800 MG, BID
  9. ACETAMINOPHEN [Concomitant]
     Indication: PAIN
     Dosage: 1000 MG, PRN
  10. ECOTRIN [Concomitant]
     Dosage: 243 MG, UNK
  11. LIPITOR [Concomitant]
     Dosage: 40 MG, EACH EVENING
  12. FISH OIL [Concomitant]
     Dosage: 1 DF, TID
  13. CALCIUM [Concomitant]
     Dosage: 600 MG, UNK
  14. FORTEO                                  /USA/ [Concomitant]
     Indication: OSTEOPOROSIS
     Dosage: 20 UG, QD

REACTIONS (2)
  - Intracranial aneurysm [Fatal]
  - Pneumonia [Fatal]
